FAERS Safety Report 4435446-9 (Version None)
Quarter: 2004Q3

REPORT INFORMATION
  Report Type: 
  Country: None (occurrence: None)
  Receive Date: 20040826
  Receipt Date: 20040820
  Transmission Date: 20050211
  Serious: Yes (Hospitalization, Other)
  Sender: FDA-Public Use
  Company Number: 2004-08-1161

PATIENT
  Age: 59 Year
  Sex: Male

DRUGS (4)
  1. REBETOL [Suspect]
     Indication: HEPATITIS C
     Dosage: 800 MG ORAL
     Route: 048
     Dates: start: 20030224, end: 20030303
  2. INTRON A [Suspect]
     Indication: HEPATITIS C
     Dosage: 6 MU INTRAMUSCULAR
     Route: 030
     Dates: start: 20030224, end: 20030822
  3. PRIMPERAN 1 A [Concomitant]
  4. PLASMANATE 250 ML [Concomitant]

REACTIONS (1)
  - PARKINSON'S DISEASE [None]
